FAERS Safety Report 9049078 (Version 2)
Quarter: 2013Q1

REPORT INFORMATION
  Report Type: Report from Study
  Country: JP (occurrence: JP)
  Receive Date: 20130205
  Receipt Date: 20130311
  Transmission Date: 20140127
  Serious: Yes (Hospitalization)
  Sender: FDA-Public Use
  Company Number: JP-ROCHE-1186680

PATIENT
  Age: 71 None
  Sex: Female
  Weight: 49 kg

DRUGS (8)
  1. METHOXY POLYETHYLENE GLYCOL-EPOETIN BETA [Suspect]
     Indication: NEPHROGENIC ANAEMIA
     Route: 042
     Dates: start: 20111114
  2. BAYASPIRIN [Concomitant]
     Route: 048
  3. TOYOFAROL [Concomitant]
     Indication: HYPERTENSIVE NEPHROPATHY
     Route: 048
  4. TAKEPRON [Concomitant]
     Route: 048
  5. RENAGEL [Concomitant]
     Indication: HYPERTENSIVE NEPHROPATHY
     Route: 048
  6. CALTAN [Concomitant]
     Indication: HYPERTENSIVE NEPHROPATHY
     Route: 048
  7. ALLEGRA [Concomitant]
     Indication: HYPERTENSIVE NEPHROPATHY
     Route: 048
  8. BENZALIN [Concomitant]
     Route: 048

REACTIONS (1)
  - Vascular graft occlusion [Recovered/Resolved]
